FAERS Safety Report 6658132-3 (Version None)
Quarter: 2010Q1

REPORT INFORMATION
  Report Type: 
  Country: None (occurrence: None)
  Receive Date: 20100330
  Receipt Date: 20100325
  Transmission Date: 20100710
  Serious: Yes (Hospitalization)
  Sender: FDA-Public Use
  Company Number: A0758021A

PATIENT
  Age: 55 Year
  Sex: Male
  Weight: 150 kg

DRUGS (8)
  1. AVANDIA [Suspect]
     Dosage: 8MG PER DAY
     Route: 048
     Dates: start: 20040101
  2. METFORMIN (GLUCOPHAGE) [Concomitant]
  3. GLYBURIDE [Concomitant]
  4. ZOCOR [Concomitant]
  5. QUINAPRIL [Concomitant]
  6. FLOMAX [Concomitant]
  7. ATENOLOL [Concomitant]
  8. ACCUPRIL [Concomitant]

REACTIONS (2)
  - ATRIAL FIBRILLATION [None]
  - CARDIAC FAILURE CONGESTIVE [None]
